FAERS Safety Report 10595644 (Version 2)
Quarter: 2015Q1

REPORT INFORMATION
  Report Type: Spontaneous
  Country: US (occurrence: US)
  Receive Date: 20141120
  Receipt Date: 20150113
  Transmission Date: 20150720
  Serious: Yes (Other)
  Sender: FDA-Public Use
  Company Number: US-FRI-1000072275

PATIENT
  Age: 53 Year
  Sex: Female

DRUGS (5)
  1. ARMOUR THYROID [Suspect]
     Active Substance: THYROID, PORCINE\THYROID, UNSPECIFIED
     Dosage: 30MG
     Route: 048
     Dates: start: 20141026, end: 20141027
  2. LORAZEPAM. [Concomitant]
     Active Substance: LORAZEPAM
     Indication: ANXIETY
     Dates: start: 20140925
  3. LOPRESSOR [Concomitant]
     Active Substance: METOPROLOL TARTRATE
  4. ARMOUR THYROID [Suspect]
     Active Substance: THYROID, PORCINE\THYROID, UNSPECIFIED
     Indication: HYPOTHYROIDISM
     Dosage: 60MG
     Route: 048
     Dates: end: 20141025
  5. SERTRALINE [Suspect]
     Active Substance: SERTRALINE HYDROCHLORIDE
     Indication: ANXIETY
     Dates: start: 20140925, end: 20140929

REACTIONS (6)
  - Formication [Recovered/Resolved]
  - Palpitations [Recovered/Resolved]
  - Anxiety [Recovered/Resolved]
  - Ventricular extrasystoles [Unknown]
  - Nausea [Recovered/Resolved]
  - Tremor [Recovered/Resolved]

NARRATIVE: CASE EVENT DATE: 20140929
